FAERS Safety Report 6138585 (Version 2)
Quarter: 2012Q4

REPORT INFORMATION
  Report Type: 
  Country: US (occurrence: None)
  Receive Date: 20060915
  Receipt Date: 20121107
  Transmission Date: 20130627
  Serious: Yes (Other)
  Sender: FDA-Public Use
  Company Number: 2006US-03643

PATIENT
  Age: 41 Year
  Sex: Male

DRUGS (2)
  1. MORPHINE SULFATE [Suspect]
     Indication: NEUROPATHIC PAIN
     Route: 037
  2. CLONIDINE [Concomitant]

REACTIONS (18)
  - Drug withdrawal syndrome [None]
  - Allodynia [None]
  - Fatigue [None]
  - Sleep disorder [None]
  - Depressed mood [None]
  - Phrenic nerve paralysis [None]
  - Mental disorder [None]
  - Device dislocation [None]
  - Respiratory acidosis [None]
  - Neuralgia [None]
  - Mechanical ventilation [None]
  - Toxicity to various agents [None]
  - Mental disorder [None]
  - Respiratory failure [None]
  - Device leakage [None]
  - General physical health deterioration [None]
  - Gait disturbance [None]
  - Pain [None]
